FAERS Safety Report 5488306-9 (Version None)
Quarter: 2007Q4

REPORT INFORMATION
  Report Type: 
  Country: None (occurrence: None)
  Receive Date: 20071017
  Receipt Date: 20071015
  Transmission Date: 20080405
  Serious: Yes (Life-Threatening, Hospitalization)
  Sender: FDA-Public Use
  Company Number: FR-ASTRAZENECA-2007CG01463

PATIENT
  Age: 16587 Day
  Sex: Male
  Weight: 89 kg

DRUGS (3)
  1. ZESTORETIC [Suspect]
     Dosage: 20 + 12.5 MG DAILY
     Route: 048
     Dates: start: 20070715, end: 20070904
  2. TAHOR [Concomitant]
     Route: 048
  3. SERETIDE [Concomitant]
     Dosage: 500 ?G + 100 ?G DAILY
     Route: 055

REACTIONS (3)
  - PANCREATITIS ACUTE [None]
  - RENAL FAILURE ACUTE [None]
  - RESPIRATORY FAILURE [None]
